FAERS Safety Report 9140260 (Version 1)
Quarter: 2013Q1

REPORT INFORMATION
  Report Type: Spontaneous
  Country: US (occurrence: US)
  Receive Date: 20130305
  Receipt Date: 20130305
  Transmission Date: 20140127
  Serious: Yes (Hospitalization)
  Sender: FDA-Public Use
  Company Number: US-PFIZER INC-2013072152

PATIENT
  Age: 14 Month
  Sex: Female

DRUGS (2)
  1. CEFTRIAXONE SODIUM [Suspect]
     Indication: OTITIS MEDIA
     Dosage: UNK
     Route: 030
  2. AZITHROMYCIN [Suspect]
     Dosage: UNK

REACTIONS (2)
  - Rash [Recovering/Resolving]
  - Acute haemorrhagic oedema of infancy [Recovering/Resolving]
